FAERS Safety Report 16728804 (Version 1)
Quarter: 2019Q3

REPORT INFORMATION
  Report Type: Spontaneous
  Country: IL (occurrence: IL)
  Receive Date: 20190822
  Receipt Date: 20190822
  Transmission Date: 20191005
  Serious: Yes (Hospitalization, Other)
  Sender: FDA-Public Use
  Company Number: IL-BRISTOL-MYERS SQUIBB COMPANY-BMS-2019-082274

PATIENT
  Age: 93 Year
  Sex: Female

DRUGS (1)
  1. APIXABAN [Suspect]
     Active Substance: APIXABAN
     Indication: CEREBROVASCULAR ACCIDENT PROPHYLAXIS
     Dosage: 2.5 MILLIGRAM, QD
     Route: 065
     Dates: start: 20160323, end: 20190810

REACTIONS (5)
  - Fall [Unknown]
  - Off label use [Unknown]
  - Subdural haematoma [Unknown]
  - Prescribed underdose [Unknown]
  - Head injury [Unknown]

NARRATIVE: CASE EVENT DATE: 201908
